FAERS Safety Report 4409802-9 (Version None)
Quarter: 2004Q3

REPORT INFORMATION
  Report Type: 
  Country: None (occurrence: None)
  Receive Date: 20040726
  Receipt Date: 20040609
  Transmission Date: 20050211
  Serious: Yes (Death, Hospitalization)
  Sender: FDA-Public Use
  Company Number: 2004-BP-03766RP

PATIENT
  Age: 74 Year
  Sex: Male

DRUGS (3)
  1. MICARDIS [Suspect]
     Indication: HYPERTENSION
     Dosage: 40 MG (40MG, 1 TAB OD) , PO
     Route: 048
     Dates: start: 20031102
  2. AUGMENTIN (NR) [Concomitant]
  3. PREDNISONE (PREDNISONE) (NR) [Concomitant]

REACTIONS (5)
  - ACUTE RESPIRATORY FAILURE [None]
  - CHRONIC OBSTRUCTIVE AIRWAYS DISEASE EXACERBATED [None]
  - COR PULMONALE [None]
  - CORONARY ARTERY DISEASE [None]
  - PNEUMONIA [None]
